FAERS Safety Report 4751739-X (Version None)
Quarter: 2005Q3

REPORT INFORMATION
  Report Type: 
  Country: None (occurrence: None)
  Receive Date: 20050822
  Receipt Date: 20050822
  Transmission Date: 20060218
  Serious: Yes (Hospitalization)
  Sender: FDA-Public Use
  Company Number: None

PATIENT
  Age: 62 Year
  Sex: Male
  Weight: 98.3 kg

DRUGS (7)
  1. CRESTOR [Suspect]
     Indication: HYPERCHOLESTEROLAEMIA
     Dosage: 10MG   DAILY  PO
     Route: 048
  2. TRICOR [Suspect]
     Indication: HYPERCHOLESTEROLAEMIA
     Dosage: 145MG   DAILY   PO
     Route: 048
  3. METFORMIN [Concomitant]
  4. NAPROXEN [Concomitant]
  5. GLIPIZIDE [Concomitant]
  6. ALLOPURINOL [Concomitant]
  7. COZAAR [Concomitant]

REACTIONS (3)
  - RASH [None]
  - RHABDOMYOLYSIS [None]
  - SENSORY DISTURBANCE [None]
